FAERS Safety Report 5138547-5 (Version None)
Quarter: 2006Q4

REPORT INFORMATION
  Report Type: 
  Country: None (occurrence: None)
  Receive Date: 20061030
  Receipt Date: 20060313
  Transmission Date: 20070319
  Serious: No
  Sender: FDA-Public Use
  Company Number: US-GLAXOSMITHKLINE-A0597311A

PATIENT
  Sex: Female

DRUGS (2)
  1. ADVAIR HFA [Suspect]
     Indication: ASTHMA
     Dosage: 1PUFF AT NIGHT
     Route: 055
  2. UNSPECIFIED INHALER [Concomitant]
     Indication: ASTHMA
     Route: 055

REACTIONS (2)
  - ADVERSE EVENT [None]
  - DRUG EFFECT DECREASED [None]
